FAERS Safety Report 9095552 (Version 1)
Quarter: 2013Q1

REPORT INFORMATION
  Report Type: Spontaneous
  Country: GB (occurrence: GB)
  Receive Date: 20130219
  Receipt Date: 20130219
  Transmission Date: 20140127
  Serious: Yes (Other)
  Sender: FDA-Public Use
  Company Number: PHHY2013GB014575

PATIENT
  Age: 54 Year
  Sex: Female
  Weight: 66.67 kg

DRUGS (2)
  1. AMOXICILLIN TRIHYDRATE [Suspect]
     Dosage: 500 MG
     Route: 048
     Dates: start: 20130121
  2. LEVOTHYROXINE [Concomitant]

REACTIONS (16)
  - Arthralgia [Not Recovered/Not Resolved]
  - Joint swelling [Not Recovered/Not Resolved]
  - Syncope [Not Recovered/Not Resolved]
  - Pain [Recovering/Resolving]
  - Local swelling [Not Recovered/Not Resolved]
  - Abdominal pain upper [Not Recovered/Not Resolved]
  - Feeling abnormal [Not Recovered/Not Resolved]
  - Aphagia [Recovering/Resolving]
  - Dysphagia [Recovering/Resolving]
  - Rash [Not Recovered/Not Resolved]
  - Urticaria [Not Recovered/Not Resolved]
  - Pyrexia [Not Recovered/Not Resolved]
  - Decreased appetite [Not Recovered/Not Resolved]
  - Diarrhoea [Not Recovered/Not Resolved]
  - Vomiting [Not Recovered/Not Resolved]
  - Pruritus [Not Recovered/Not Resolved]
